FAERS Safety Report 4751537-7 (Version None)
Quarter: 2005Q3

REPORT INFORMATION
  Report Type: 
  Country: None (occurrence: None)
  Receive Date: 20050824
  Receipt Date: 20050615
  Transmission Date: 20060218
  Serious: Yes (Hospitalization)
  Sender: FDA-Public Use
  Company Number: PHNU2005DE02279

PATIENT
  Age: 79 Year
  Sex: Female

DRUGS (7)
  1. TEGRETOL [Suspect]
     Dosage: 1200 MG/DAY
     Route: 048
     Dates: end: 20050101
  2. TEGRETOL [Suspect]
     Dosage: 800 MG/DAY
     Route: 048
     Dates: end: 20050101
  3. DICLOFENAC SODIUM [Concomitant]
  4. ROHYPNOL [Concomitant]
  5. RANITIDINE HCL [Concomitant]
  6. BISOPROLOL [Concomitant]
  7. BETAHISTINE [Concomitant]

REACTIONS (3)
  - CHOLELITHIASIS [None]
  - DIZZINESS [None]
  - MEDICATION ERROR [None]
